FAERS Safety Report 25220822 (Version 1)
Quarter: 2025Q2

REPORT INFORMATION
  Report Type: Spontaneous
  Country: GB (occurrence: GB)
  Receive Date: 20250421
  Receipt Date: 20250421
  Transmission Date: 20250716
  Serious: Yes (Hospitalization, Disabling, Other)
  Sender: ELI LILLY AND COMPANY
  Company Number: None

PATIENT
  Age: 48 Year
  Sex: Female
  Weight: 87 kg

DRUGS (3)
  1. MOUNJARO [Suspect]
     Active Substance: TIRZEPATIDE
     Indication: Type 2 diabetes mellitus
     Dosage: UNK UNK, WEEKLY (1/W)
     Route: 065
     Dates: start: 20240310
  2. MOUNJARO [Suspect]
     Active Substance: TIRZEPATIDE
     Indication: Type 2 diabetes mellitus
     Dosage: 5 MG, WEEKLY (1/W)
     Route: 065
  3. GLICLAZIDE [Concomitant]
     Active Substance: GLICLAZIDE
     Indication: Diabetes mellitus

REACTIONS (6)
  - Vaginal haemorrhage [Not Recovered/Not Resolved]
  - Anaemia [Unknown]
  - Polycystic ovarian syndrome [Unknown]
  - Adenomyosis [Unknown]
  - Uterine leiomyoma [Unknown]
  - Polyp [Unknown]

NARRATIVE: CASE EVENT DATE: 20240320
